FAERS Safety Report 6565715-8 (Version None)
Quarter: 2010Q1

REPORT INFORMATION
  Report Type: 
  Country: None (occurrence: None)
  Receive Date: 20100201
  Receipt Date: 20100121
  Transmission Date: 20100710
  Serious: Yes (Death, Other)
  Sender: FDA-Public Use
  Company Number: GB-AMGEN-US388459

PATIENT
  Age: 70 Year
  Sex: Male

DRUGS (1)
  1. ENBREL [Suspect]
     Indication: PSORIASIS
     Dates: start: 20070301, end: 20070901

REACTIONS (4)
  - CONDITION AGGRAVATED [None]
  - DEATH [None]
  - HEPATIC NEOPLASM MALIGNANT [None]
  - PSORIASIS [None]
